FAERS Safety Report 9726387 (Version 2)
Quarter: 2014Q1

REPORT INFORMATION
  Report Type: Spontaneous
  Country: GB (occurrence: None)
  Receive Date: 20131129
  Receipt Date: 20140311
  Transmission Date: 20141002
  Serious: Yes (Other)
  Sender: FDA-Public Use
  Company Number: AUR-APL-2013-09799

PATIENT
  Age: 54 Year
  Sex: Male
  Weight: 75 kg

DRUGS (14)
  1. CLOPIDOGREL [Suspect]
     Indication: PRODUCT USED FOR UNKNOWN INDICATION
     Dates: start: 20131014, end: 20131206
  2. ASPIRIN (ACETYLSALICYLIC ACID) [Concomitant]
  3. ATORVASTATIN (ATORVASTATIN) [Concomitant]
  4. BETAMETHASONE VALERATE (BETAMETHASONE VALERATE) [Concomitant]
  5. CLOTRIMAZOLE (CLOTRIMAZOLE) [Concomitant]
  6. ERYTHROMYCIN (ERYTHROMYCIN) [Concomitant]
  7. FUSIDIC ACID (FUSIDIC ACID) [Concomitant]
  8. HYDROCORTISONE (HYDROCORTISONE) [Concomitant]
  9. KETOCONAZOLE (KETOCONAZOLE) [Concomitant]
  10. NIQUITIN (NICOTINE) [Concomitant]
  11. SERTRALINE (SERTRALINE) [Concomitant]
  12. SOTALOL [Concomitant]
  13. SUDOCREM (SUDOCREM) [Concomitant]
  14. TERBINAFINE (TERBINAFINE) [Concomitant]

REACTIONS (5)
  - Psoriasis [None]
  - Rash pruritic [None]
  - Rash [None]
  - Rash generalised [None]
  - Dermatitis psoriasiform [None]
